FAERS Safety Report 6339099-4 (Version None)
Quarter: 2009Q3

REPORT INFORMATION
  Report Type: 
  Country: None (occurrence: None)
  Receive Date: 20090903
  Receipt Date: 20090824
  Transmission Date: 20100115
  Serious: Yes (Hospitalization)
  Sender: FDA-Public Use
  Company Number: SI-BRISTOL-MYERS SQUIBB COMPANY-14752240

PATIENT
  Age: 41 Year
  Sex: Female

DRUGS (7)
  1. CISPLATIN [Suspect]
     Indication: METASTATIC MALIGNANT MELANOMA
     Dosage: ON DAY 2 OF 21 DAY CYCLE
     Route: 042
     Dates: start: 20070601
  2. LOMUSTINE [Suspect]
     Indication: METASTATIC MALIGNANT MELANOMA
     Dosage: ON DAY 1 OF 21 DAY CYCLE
     Route: 048
     Dates: start: 20070601
  3. VINBLASTINE [Suspect]
     Indication: METASTATIC MALIGNANT MELANOMA
     Dosage: ON DAY 1 OF 21 DAY CYCLE
     Dates: start: 20070601
  4. DEXAMETHASONE [Concomitant]
     Indication: PREMEDICATION
  5. GRANISETRON HCL [Concomitant]
     Indication: PREMEDICATION
  6. MANNITOL [Concomitant]
     Indication: PREMEDICATION
  7. MAGNESIUM SULFATE [Concomitant]
     Indication: PREMEDICATION

REACTIONS (1)
  - REVERSIBLE POSTERIOR LEUKOENCEPHALOPATHY SYNDROME [None]
